FAERS Safety Report 17595040 (Version 1)
Quarter: 2020Q1

REPORT INFORMATION
  Report Type: Report from Study
  Country: ES (occurrence: ES)
  Receive Date: 20200328
  Receipt Date: 20200328
  Transmission Date: 20200409
  Serious: Yes (Life-Threatening, Hospitalization)
  Sender: FDA-Public Use
  Company Number: ES-ACCORD-177388

PATIENT
  Age: 38 Year
  Sex: Male

DRUGS (6)
  1. METHYLPHENIDATE/METHYLPHENIDATE HYDROCHLORIDE [Interacting]
     Active Substance: METHYLPHENIDATE HYDROCHLORIDE
     Route: 048
     Dates: start: 20191013, end: 20191013
  2. DIAZEPAM. [Interacting]
     Active Substance: DIAZEPAM
     Route: 048
     Dates: start: 20191013, end: 20191013
  3. QUETIAPINE. [Suspect]
     Active Substance: QUETIAPINE
     Route: 048
     Dates: start: 20191013, end: 20191013
  4. PREGABALIN. [Concomitant]
     Active Substance: PREGABALIN
     Indication: PERSONALITY DISORDER
     Route: 048
     Dates: start: 20140310, end: 20191012
  5. PREGABALIN. [Interacting]
     Active Substance: PREGABALIN
     Route: 048
     Dates: start: 20191013, end: 20191013
  6. QUETIAPINE/QUETIAPINE FUMARATE [Concomitant]
     Active Substance: QUETIAPINE FUMARATE
     Indication: PERSONALITY DISORDER
     Route: 048
     Dates: start: 20160530, end: 20191012

REACTIONS (5)
  - Coma [Recovered/Resolved]
  - Respiratory depression [Recovered/Resolved]
  - Intentional overdose [Unknown]
  - Suicide attempt [Unknown]
  - Drug interaction [Unknown]

NARRATIVE: CASE EVENT DATE: 20191013
